FAERS Safety Report 7936833 (Version 5)
Quarter: 2014Q4

REPORT INFORMATION
  Report Type: Spontaneous
  Country: US (occurrence: US)
  Receive Date: 20110509
  Receipt Date: 20141229
  Transmission Date: 20150529
  Serious: Yes (Hospitalization, Disabling, Other)
  Sender: FDA-Public Use
  Company Number: US-BAYER-2011-004392

PATIENT
  Age: 56 Year
  Sex: Male

DRUGS (6)
  1. LEVAQUIN [Concomitant]
     Active Substance: LEVOFLOXACIN
  2. BETASERON [Suspect]
     Active Substance: INTERFERON BETA-1B
     Indication: RELAPSING-REMITTING MULTIPLE SCLEROSIS
     Dosage: 0.25 MG, UNK
     Route: 058
     Dates: start: 20101229
  3. TYSABRI [Concomitant]
     Active Substance: NATALIZUMAB
     Indication: MULTIPLE SCLEROSIS
     Dosage: UNK
  4. ALCOHOL WIPE [Suspect]
     Active Substance: ISOPROPYL ALCOHOL
  5. FLOMAX [Concomitant]
     Active Substance: TAMSULOSIN HYDROCHLORIDE
  6. BETASERON [Suspect]
     Active Substance: INTERFERON BETA-1B
     Indication: MULTIPLE SCLEROSIS

REACTIONS (26)
  - Multiple sclerosis [None]
  - Injection site discharge [None]
  - Abdominal discomfort [None]
  - Fluid retention [None]
  - Anxiety [None]
  - Pyrexia [None]
  - Pain [None]
  - Sepsis [None]
  - Abdominal distension [None]
  - Weight decreased [None]
  - Abdominal pain [None]
  - Functional gastrointestinal disorder [None]
  - Musculoskeletal disorder [None]
  - Physical disability [None]
  - Tremor [Recovered/Resolved]
  - Injection site pain [None]
  - Bladder dysfunction [None]
  - Intestinal obstruction [None]
  - Muscular weakness [None]
  - Fall [Recovered/Resolved]
  - Injection site cellulitis [Unknown]
  - Dysuria [None]
  - Injury [None]
  - Erythema [None]
  - Urinary retention [None]
  - Emotional distress [None]

NARRATIVE: CASE EVENT DATE: 20101210
